FAERS Safety Report 9587721 (Version 1)
Quarter: 2013Q4

REPORT INFORMATION
  Report Type: Spontaneous
  Country: US (occurrence: US)
  Receive Date: 20131003
  Receipt Date: 20131003
  Transmission Date: 20140711
  Serious: Yes (Hospitalization, Other)
  Sender: FDA-Public Use
  Company Number: US-ELI_LILLY_AND_COMPANY-US201309008706

PATIENT
  Age: 48 Year
  Sex: Male

DRUGS (2)
  1. EFFIENT [Suspect]
     Indication: STENT PLACEMENT
     Dosage: 60 MG, SINGLE
  2. REOPRO [Suspect]
     Indication: CORONARY ARTERY THROMBOSIS
     Dosage: UNK

REACTIONS (1)
  - Device occlusion [Not Recovered/Not Resolved]
